FAERS Safety Report 5577213-9 (Version None)
Quarter: 2007Q4

REPORT INFORMATION
  Report Type: 
  Country: None (occurrence: None)
  Receive Date: 20071228
  Receipt Date: 20071221
  Transmission Date: 20080405
  Serious: Yes (Hospitalization, Other)
  Sender: FDA-Public Use
  Company Number: PHBS2007JP18083

PATIENT
  Age: 40 Year
  Sex: Male

DRUGS (10)
  1. TEGRETOL [Suspect]
     Indication: CONVULSION
     Dosage: 800 MG/D
     Route: 048
     Dates: start: 20071010, end: 20071016
  2. PHENYTOIN SODIUM CAP [Concomitant]
     Indication: CONVULSION
     Dosage: 750MG/D
     Route: 042
     Dates: start: 20071007, end: 20071012
  3. PHENYTOIN SODIUM CAP [Concomitant]
     Dosage: 250 MG/D
     Route: 042
     Dates: start: 20071006, end: 20071006
  4. FUNGIZONE [Concomitant]
     Indication: FUNGAL INFECTION
     Dosage: 300MG/D
     Route: 048
     Dates: start: 20071006
  5. PHENOBAL [Concomitant]
     Route: 065
     Dates: start: 20071020, end: 20071024
  6. LOXONIN [Concomitant]
     Route: 065
     Dates: start: 20071018, end: 20071024
  7. CRAVIT [Concomitant]
     Indication: INFECTION
     Dosage: 400MG/D
     Route: 048
  8. ALTAT [Concomitant]
     Indication: PROPHYLAXIS
     Dosage: 150MG
     Route: 042
  9. OMEPRAL [Concomitant]
     Indication: PROPHYLAXIS
     Dosage: 40MG/D
     Route: 042
  10. CEFAMEZIN [Concomitant]
     Indication: INFECTION
     Dosage: 2MG/D
     Route: 042

REACTIONS (13)
  - ALANINE AMINOTRANSFERASE INCREASED [None]
  - ASPARTATE AMINOTRANSFERASE INCREASED [None]
  - BLOOD ALKALINE PHOSPHATASE INCREASED [None]
  - BLOOD LACTATE DEHYDROGENASE INCREASED [None]
  - BLOOD POTASSIUM INCREASED [None]
  - BLOOD SODIUM DECREASED [None]
  - GAMMA-GLUTAMYLTRANSFERASE INCREASED [None]
  - HAEMATOCRIT DECREASED [None]
  - HAEMOGLOBIN DECREASED [None]
  - HEPATIC FUNCTION ABNORMAL [None]
  - LYMPHOCYTE COUNT DECREASED [None]
  - PLATELET COUNT INCREASED [None]
  - WHITE BLOOD CELL COUNT INCREASED [None]
